FAERS Safety Report 16002094 (Version 2)
Quarter: 2019Q1

REPORT INFORMATION
  Report Type: Report from Study
  Country: US (occurrence: US)
  Receive Date: 20190225
  Receipt Date: 20190226
  Transmission Date: 20190418
  Serious: Yes (Death, Hospitalization, Other)
  Sender: FDA-Public Use
  Company Number: US-GILEAD-2018-0345266

PATIENT
  Age: 63 Year
  Sex: Female
  Weight: 66.3 kg

DRUGS (233)
  1. AXICABTAGENE CILOLEUCEL [Suspect]
     Active Substance: AXICABTAGENE CILOLEUCEL
     Indication: DIFFUSE LARGE B-CELL LYMPHOMA REFRACTORY
     Dosage: 68 ML, SINGLE
     Route: 042
     Dates: start: 20180418, end: 20180418
  2. CYCLOPHOSPHAMIDE. [Suspect]
     Active Substance: CYCLOPHOSPHAMIDE
     Indication: BONE MARROW CONDITIONING REGIMEN
     Dosage: 856 MG (500 MG/M^2), QD
     Route: 042
     Dates: start: 20180408, end: 20180410
  3. FLUDARABINE [Suspect]
     Active Substance: FLUDARABINE PHOSPHATE
     Indication: BONE MARROW CONDITIONING REGIMEN
     Dosage: 51 MG (30 MG/M^2) , QD
     Route: 042
     Dates: start: 20180408, end: 20180410
  4. ZOVIRAX [Concomitant]
     Active Substance: ACYCLOVIR
     Dosage: 230 MG, QID
     Route: 042
     Dates: start: 20180423, end: 20180423
  5. ZOVIRAX [Concomitant]
     Active Substance: ACYCLOVIR
     Dosage: 400 MG, TID
     Route: 048
     Dates: start: 20180508, end: 20180516
  6. PEPCID [Concomitant]
     Active Substance: FAMOTIDINE
     Dosage: 20 MG, SINGLE
     Route: 048
     Dates: start: 20180420, end: 20180420
  7. PEPCID [Concomitant]
     Active Substance: FAMOTIDINE
     Dosage: 20 MG, BID
     Route: 048
     Dates: start: 20180508, end: 20180516
  8. ATARAX [Concomitant]
     Active Substance: HYDROXYZINE HYDROCHLORIDE
     Indication: PRURITUS
     Dosage: 25 MG, SINGLE
     Route: 048
     Dates: start: 20180422, end: 20180422
  9. ATROVENT [Concomitant]
     Active Substance: IPRATROPIUM BROMIDE
     Dosage: 0.5 MG, TID
     Dates: start: 20180423, end: 20180423
  10. IMODIUM [Concomitant]
     Active Substance: LOPERAMIDE HYDROCHLORIDE
     Indication: DIARRHOEA
     Dosage: 2 MG, SINGLE
     Route: 048
     Dates: start: 20180413, end: 20180413
  11. ZOFRAN [Concomitant]
     Active Substance: ONDANSETRON HYDROCHLORIDE
     Indication: VOMITING
     Dosage: 8 MG, BID
     Route: 048
     Dates: start: 20180413, end: 20180413
  12. ZOFRAN [Concomitant]
     Active Substance: ONDANSETRON HYDROCHLORIDE
     Dosage: 8 MG, SINGLE
     Route: 042
     Dates: start: 20180416, end: 20180416
  13. POTASSIUM CHLORIDE. [Concomitant]
     Active Substance: POTASSIUM CHLORIDE
     Indication: PRODUCT USED FOR UNKNOWN INDICATION
     Dosage: 20 MEQ, SINGLE
     Route: 042
     Dates: start: 20180410, end: 20180410
  14. POTASSIUM CHLORIDE. [Concomitant]
     Active Substance: POTASSIUM CHLORIDE
     Dosage: 30 MEQ, SINGLE
     Route: 048
     Dates: start: 20180411, end: 20180411
  15. LASIX [Concomitant]
     Active Substance: FUROSEMIDE
     Dosage: 40 MG, SINGLE
     Route: 048
     Dates: start: 20180411, end: 20180411
  16. LASIX [Concomitant]
     Active Substance: FUROSEMIDE
     Dosage: 20 MG, SINGLE
     Route: 042
     Dates: start: 20180418, end: 20180418
  17. LASIX [Concomitant]
     Active Substance: FUROSEMIDE
     Dosage: 20 MG, SINGLE
     Route: 042
     Dates: start: 20180424, end: 20180424
  18. NORMAL SALINE [Concomitant]
     Active Substance: SODIUM CHLORIDE
     Dosage: 75 ML/HR
     Route: 042
     Dates: start: 20180507, end: 20180517
  19. SODIUM CHLORIDE. [Concomitant]
     Active Substance: SODIUM CHLORIDE
     Dosage: 250 ML, SINGLE
     Route: 042
     Dates: start: 20180423, end: 20180423
  20. ZYLOPRIM [Concomitant]
     Active Substance: ALLOPURINOL
     Indication: PRODUCT USED FOR UNKNOWN INDICATION
     Dosage: 200 MG, QD
     Route: 048
     Dates: start: 20180412, end: 20180422
  21. HYDRALAZINE [Concomitant]
     Active Substance: HYDRALAZINE HYDROCHLORIDE
     Dosage: 5 MG, Q6H
     Route: 042
     Dates: start: 20180428, end: 20180516
  22. ATIVAN [Concomitant]
     Active Substance: LORAZEPAM
     Indication: ANXIETY
     Dosage: 0.5 MG, SINGLE
     Route: 048
     Dates: start: 20180413, end: 20180413
  23. SODIUM PHOSPHATE [Concomitant]
     Active Substance: SODIUM PHOSPHATE
     Dosage: 15 MMOL, PRN
     Route: 042
     Dates: start: 20180419, end: 20180515
  24. PROVENTIL [Concomitant]
     Active Substance: ALBUTEROL
     Indication: BRONCHOSPASM
     Dosage: 2.5 MG, Q4HR PRN
     Route: 045
     Dates: start: 20180515, end: 20180530
  25. MAGNESIUM [Concomitant]
     Active Substance: MAGNESIUM
     Dosage: 133-399 MG, PRN
     Dates: start: 20180409, end: 20180418
  26. REGLAN [Concomitant]
     Active Substance: METOCLOPRAMIDE HYDROCHLORIDE
     Indication: VOMITING
     Dosage: 10 MG, SINGLE
     Route: 042
     Dates: start: 20180515, end: 20180515
  27. REGLAN [Concomitant]
     Active Substance: METOCLOPRAMIDE HYDROCHLORIDE
     Dosage: 10 MG, SINGLE
     Route: 042
     Dates: start: 20180516, end: 20180516
  28. ZOVIRAX [Concomitant]
     Active Substance: ACYCLOVIR
     Indication: PROPHYLAXIS
     Dosage: 400 MG, SINGLE
     Route: 048
     Dates: start: 20180410, end: 20180410
  29. ZOVIRAX [Concomitant]
     Active Substance: ACYCLOVIR
     Dosage: 400 MG, SINGLE
     Route: 048
     Dates: start: 20180420, end: 20180420
  30. CETAPHIL                           /02833701/ [Concomitant]
     Dosage: UNK UNK, SINGLE
     Route: 061
     Dates: start: 20180416, end: 20180416
  31. CETAPHIL                           /02833701/ [Concomitant]
     Dosage: UNK UNK, SINGLE
     Route: 061
     Dates: start: 20180423, end: 20180423
  32. ATARAX [Concomitant]
     Active Substance: HYDROXYZINE HYDROCHLORIDE
     Dosage: 25 MG, Q6H
     Route: 048
     Dates: start: 20180409, end: 20180516
  33. TRANDATE [Concomitant]
     Active Substance: LABETALOL HYDROCHLORIDE
     Indication: BLOOD PRESSURE SYSTOLIC INCREASED
     Dosage: 5 MG, SINGLE
     Route: 042
     Dates: start: 20180423, end: 20180423
  34. IMODIUM [Concomitant]
     Active Substance: LOPERAMIDE HYDROCHLORIDE
     Dosage: 2 MG, Q6H
     Route: 048
     Dates: start: 20180418, end: 20180517
  35. MAGNESIUM SULFATE. [Concomitant]
     Active Substance: MAGNESIUM SULFATE
     Dosage: 8-32 MEQ, SINGLE
     Route: 042
     Dates: start: 20180412, end: 20180412
  36. MAGNESIUM SULFATE. [Concomitant]
     Active Substance: MAGNESIUM SULFATE
     Dosage: 8-32 MEQ, BID
     Route: 042
     Dates: start: 20180419, end: 20180419
  37. MAGNESIUM SULFATE. [Concomitant]
     Active Substance: MAGNESIUM SULFATE
     Dosage: 8-32 MEQ, SINGLE
     Route: 042
     Dates: start: 20180422, end: 20180422
  38. MYCOSTATIN [Concomitant]
     Active Substance: NYSTATIN
     Indication: ORAL INFECTION
     Dosage: 5 ML, QID
     Route: 048
     Dates: start: 20180416, end: 20180416
  39. MYCOSTATIN [Concomitant]
     Active Substance: NYSTATIN
     Dosage: 5 ML, TID
     Route: 048
     Dates: start: 20180421, end: 20180421
  40. MYCOSTATIN [Concomitant]
     Active Substance: NYSTATIN
     Dosage: 5 ML, BID
     Route: 048
     Dates: start: 20180422, end: 20180422
  41. ZOFRAN [Concomitant]
     Active Substance: ONDANSETRON HYDROCHLORIDE
     Dosage: 8 MG, TID
     Route: 048
     Dates: start: 20180414, end: 20180415
  42. ZOFRAN [Concomitant]
     Active Substance: ONDANSETRON HYDROCHLORIDE
     Dosage: 16 MG, BID
     Route: 042
     Dates: start: 20180418, end: 20180420
  43. POTASSIUM CHLORIDE. [Concomitant]
     Active Substance: POTASSIUM CHLORIDE
     Dosage: 20 MEQ, SINGLE
     Route: 042
     Dates: start: 20180420, end: 20180420
  44. COMPAZINE                          /00013302/ [Concomitant]
     Active Substance: PROCHLORPERAZINE EDISYLATE
     Dosage: 5 MG, SINGLE
     Route: 042
     Dates: start: 20180419, end: 20180419
  45. COMPAZINE                          /00013302/ [Concomitant]
     Active Substance: PROCHLORPERAZINE EDISYLATE
     Dosage: 5 MG, SINGLE
     Route: 048
     Dates: start: 20180420, end: 20180420
  46. OFIRMEV [Concomitant]
     Active Substance: ACETAMINOPHEN
     Indication: PRODUCT USED FOR UNKNOWN INDICATION
     Dosage: 1 G, 400 ML/HR SINGLE
     Route: 042
     Dates: start: 20180412, end: 20180412
  47. NORMAL SALINE [Concomitant]
     Active Substance: SODIUM CHLORIDE
     Indication: PRODUCT USED FOR UNKNOWN INDICATION
     Dosage: 100 ML/HR CONTINUOUS
     Route: 042
     Dates: start: 20180409, end: 20180410
  48. NORMAL SALINE [Concomitant]
     Active Substance: SODIUM CHLORIDE
     Dosage: 75 ML/HR CONTINUOUS
     Route: 042
     Dates: start: 20180412, end: 20180415
  49. NORMAL SALINE [Concomitant]
     Active Substance: SODIUM CHLORIDE
     Dosage: 125 ML/HR CONTINUOUS
     Route: 042
     Dates: start: 20180418, end: 20180420
  50. NORMAL SALINE [Concomitant]
     Active Substance: SODIUM CHLORIDE
     Dosage: 25 ML/HR CONTINUOUS
     Route: 042
     Dates: start: 20180423, end: 20180423
  51. HYDRALAZINE [Concomitant]
     Active Substance: HYDRALAZINE HYDROCHLORIDE
     Dosage: 5 MG, SINGLE
     Route: 042
     Dates: start: 20180415, end: 20180415
  52. VANCOCIN [Concomitant]
     Active Substance: VANCOMYCIN HYDROCHLORIDE
     Indication: PRODUCT USED FOR UNKNOWN INDICATION
     Dosage: 1 G, SINGLE
     Route: 042
     Dates: start: 20180420, end: 20180420
  53. PROVENTIL [Concomitant]
     Active Substance: ALBUTEROL
     Indication: WHEEZING
     Dosage: 2.5 MG, Q4HR PRN
     Route: 045
     Dates: start: 20180420, end: 20180514
  54. NOXAFIL [Concomitant]
     Active Substance: POSACONAZOLE
     Indication: PRODUCT USED FOR UNKNOWN INDICATION
     Dosage: 300 MG, BID
     Route: 042
     Dates: start: 20180515, end: 20180516
  55. ONDASETRON                         /00955301/ [Concomitant]
     Active Substance: ONDANSETRON
     Indication: PRODUCT USED FOR UNKNOWN INDICATION
     Dosage: 16 MG, SINGLE
     Route: 042
     Dates: start: 20180409, end: 20180409
  56. DUONEB [Concomitant]
     Active Substance: ALBUTEROL SULFATE\IPRATROPIUM BROMIDE
     Indication: PRODUCT USED FOR UNKNOWN INDICATION
     Dosage: 3 ML, Q4H
     Route: 045
     Dates: start: 20180515, end: 20180530
  57. SOLU-CORTEF [Concomitant]
     Active Substance: HYDROCORTISONE SODIUM SUCCINATE
     Indication: HYPERSENSITIVITY
     Dosage: 50 MG, PRN
     Route: 042
     Dates: start: 20180409, end: 20180516
  58. TYLENOL [Concomitant]
     Active Substance: ACETAMINOPHEN
     Indication: PYREXIA
     Dosage: 650 MG, QD
     Route: 048
     Dates: start: 20180412, end: 20180413
  59. MAALOX                             /00416501/ [Concomitant]
     Active Substance: ALUMINUM HYDROXIDE\DIMETHICONE\MAGNESIUM HYDROXIDE
     Indication: ABDOMINAL DISCOMFORT
     Dosage: 30 ML, SINGLE
     Route: 048
     Dates: start: 20180418, end: 20180418
  60. BENADRYL [Concomitant]
     Active Substance: DIPHENHYDRAMINE HYDROCHLORIDE
     Indication: HYPERSENSITIVITY
     Dosage: 12.5 MG, SINGLE
     Route: 042
     Dates: start: 20180418, end: 20180418
  61. BENADRYL [Concomitant]
     Active Substance: DIPHENHYDRAMINE HYDROCHLORIDE
     Dosage: 50 MG, Q4H
     Route: 048
     Dates: start: 20180409, end: 20180516
  62. CETAPHIL                           /02833701/ [Concomitant]
     Dosage: UNK UNK, SINGLE
     Route: 061
     Dates: start: 20180413, end: 20180413
  63. HEPARIN [Concomitant]
     Active Substance: HEPARIN SODIUM
     Dosage: 100 UNIT/ML, PRN
     Route: 042
     Dates: start: 20180418, end: 20180530
  64. ATROVENT [Concomitant]
     Active Substance: IPRATROPIUM BROMIDE
     Dosage: 0.5 MG, SINGLE
     Dates: start: 20180422, end: 20180422
  65. KEPPRA [Concomitant]
     Active Substance: LEVETIRACETAM
     Dosage: 500 MG, Q12H
     Route: 042
     Dates: start: 20180421, end: 20180423
  66. KEPPRA [Concomitant]
     Active Substance: LEVETIRACETAM
     Dosage: 500 MG, BID
     Route: 048
     Dates: start: 20180512, end: 20180516
  67. MERREM [Concomitant]
     Active Substance: MEROPENEM
     Indication: LUNG INFECTION
     Dosage: 1 G, SINGLE
     Route: 042
     Dates: start: 20180412, end: 20180412
  68. MYCOSTATIN [Concomitant]
     Active Substance: NYSTATIN
     Dosage: 5 ML, SINGLE
     Route: 048
     Dates: start: 20180420, end: 20180420
  69. POTASSIUM CHLORIDE. [Concomitant]
     Active Substance: POTASSIUM CHLORIDE
     Dosage: 20 MEQ, BID
     Route: 042
     Dates: start: 20180412, end: 20180412
  70. DESYREL [Concomitant]
     Active Substance: TRAZODONE HYDROCHLORIDE
     Dosage: 50 MG, SINGLE BEDTIME
     Route: 048
     Dates: start: 20180416, end: 20180416
  71. DESYREL [Concomitant]
     Active Substance: TRAZODONE HYDROCHLORIDE
     Dosage: 25 MG, SINGLE BEDTIME
     Route: 048
     Dates: start: 20180419, end: 20180419
  72. OFIRMEV [Concomitant]
     Active Substance: ACETAMINOPHEN
     Dosage: 1 G, 400 ML/HR SINGLE
     Route: 042
     Dates: start: 20180422, end: 20180422
  73. MAXIPIME [Concomitant]
     Active Substance: CEFEPIME HYDROCHLORIDE
     Dosage: 2 G, Q8H
     Route: 042
     Dates: start: 20180514, end: 20180517
  74. LASIX [Concomitant]
     Active Substance: FUROSEMIDE
     Dosage: 20 MG, SINGLE
     Route: 048
     Dates: start: 20180417, end: 20180417
  75. SODIUM CHLORIDE. [Concomitant]
     Active Substance: SODIUM CHLORIDE
     Indication: PRODUCT USED FOR UNKNOWN INDICATION
     Dosage: 3 ML, SINGLE
     Dates: start: 20180413, end: 20180413
  76. NORVASC [Concomitant]
     Active Substance: AMLODIPINE BESYLATE
     Indication: PRODUCT USED FOR UNKNOWN INDICATION
     Dosage: 5 MG, QD
     Route: 048
     Dates: start: 20180416, end: 20180422
  77. HYDRALAZINE [Concomitant]
     Active Substance: HYDRALAZINE HYDROCHLORIDE
     Indication: BLOOD PRESSURE INCREASED
     Dosage: 2.5 MG, SINGLE
     Route: 042
     Dates: start: 20180415, end: 20180415
  78. ATIVAN [Concomitant]
     Active Substance: LORAZEPAM
     Dosage: 0.25 MG, SINGLE
     Route: 048
     Dates: start: 20180419, end: 20180419
  79. FIORICET [Concomitant]
     Active Substance: ACETAMINOPHEN\BUTALBITAL\CAFFEINE
     Indication: HEADACHE
     Dosage: 1 DF, Q6H
     Route: 048
     Dates: start: 20180510, end: 20180516
  80. SARNA (CAMPHOR (NATURAL)\MENTHOL) [Concomitant]
     Active Substance: CAMPHOR (NATURAL)\MENTHOL
     Indication: PRURITUS
     Dosage: UNK, BID
     Route: 061
     Dates: start: 20180505, end: 20180515
  81. XYLOCAINE [Concomitant]
     Active Substance: LIDOCAINE HYDROCHLORIDE
     Indication: PAIN
     Dosage: 2 ML, PRN
     Route: 042
     Dates: start: 20180515
  82. CARAFATE [Concomitant]
     Active Substance: SUCRALFATE
     Dosage: 1 G, Q6H
     Dates: start: 20180419, end: 20180515
  83. TYLENOL [Concomitant]
     Active Substance: ACETAMINOPHEN
     Dosage: 650 MG, SINGLE
     Route: 048
     Dates: start: 20180420, end: 20180420
  84. ZOVIRAX [Concomitant]
     Active Substance: ACYCLOVIR
     Dosage: 400 MG, TID
     Route: 048
     Dates: start: 20180419, end: 20180419
  85. ZOVIRAX [Concomitant]
     Active Substance: ACYCLOVIR
     Dosage: 230 MG, 100 ML/HR 1 HOUR, TWICE
     Route: 042
     Dates: start: 20180421, end: 20180421
  86. BENADRYL [Concomitant]
     Active Substance: DIPHENHYDRAMINE HYDROCHLORIDE
     Dosage: 25 MG, Q4H
     Route: 042
     Dates: start: 20180409, end: 20180516
  87. PEPCID [Concomitant]
     Active Substance: FAMOTIDINE
     Indication: PRODUCT USED FOR UNKNOWN INDICATION
     Dosage: 20 MG, SINGLE
     Route: 048
     Dates: start: 20180409, end: 20180409
  88. PEPCID [Concomitant]
     Active Substance: FAMOTIDINE
     Dosage: 20 MG, SINGLE
     Route: 042
     Dates: start: 20180420, end: 20180420
  89. PEPCID [Concomitant]
     Active Substance: FAMOTIDINE
     Dosage: 20 MG, BID
     Route: 042
     Dates: start: 20180421, end: 20180423
  90. ATROVENT [Concomitant]
     Active Substance: IPRATROPIUM BROMIDE
     Dosage: 0.5 MG, TID
     Dates: start: 20180421, end: 20180421
  91. ATROVENT [Concomitant]
     Active Substance: IPRATROPIUM BROMIDE
     Dosage: 0.5 MG, Q6H
     Dates: start: 20180420, end: 20180510
  92. KEPPRA [Concomitant]
     Active Substance: LEVETIRACETAM
     Dosage: 500 MG, SINGLE
     Route: 048
     Dates: start: 20180420, end: 20180420
  93. LEVAQUIN [Concomitant]
     Active Substance: LEVOFLOXACIN
     Dosage: 750 MG, QD EVERY 24 HOURS
     Route: 042
     Dates: start: 20180420, end: 20180423
  94. MAGNESIUM SULFATE. [Concomitant]
     Active Substance: MAGNESIUM SULFATE
     Indication: HYPOMAGNESAEMIA
     Dosage: 8-32 MEQ, SINGLE
     Route: 042
     Dates: start: 20180410, end: 20180410
  95. MAGNESIUM SULFATE. [Concomitant]
     Active Substance: MAGNESIUM SULFATE
     Dosage: 8-32 MEQ, SINGLE
     Route: 042
     Dates: start: 20180415, end: 20180415
  96. MAGNESIUM SULFATE. [Concomitant]
     Active Substance: MAGNESIUM SULFATE
     Dosage: 8-32 MEQ, SINGLE
     Route: 042
     Dates: start: 20180417, end: 20180417
  97. MAGNESIUM SULFATE. [Concomitant]
     Active Substance: MAGNESIUM SULFATE
     Dosage: 8-32 MEQ, SINGLE
     Route: 042
     Dates: start: 20180418, end: 20180418
  98. MAGNESIUM SULFATE. [Concomitant]
     Active Substance: MAGNESIUM SULFATE
     Dosage: 8-32 MEQ, SINGLE
     Route: 042
     Dates: start: 20180418, end: 20180418
  99. MAGNESIUM SULFATE. [Concomitant]
     Active Substance: MAGNESIUM SULFATE
     Dosage: 8-32 MEQ, SINGLE
     Route: 042
     Dates: start: 20180420, end: 20180420
  100. MYCOSTATIN [Concomitant]
     Active Substance: NYSTATIN
     Dosage: 5 ML, TID
     Route: 048
     Dates: start: 20180417, end: 20180417
  101. MYCOSTATIN [Concomitant]
     Active Substance: NYSTATIN
     Dosage: 5 ML, TID
     Route: 048
     Dates: start: 20180418, end: 20180418
  102. ZOFRAN [Concomitant]
     Active Substance: ONDANSETRON HYDROCHLORIDE
     Dosage: 8 MG, SINGLE
     Route: 048
     Dates: start: 20180422, end: 20180422
  103. POTASSIUM CHLORIDE. [Concomitant]
     Active Substance: POTASSIUM CHLORIDE
     Dosage: 10 - 60 MEQ, PRN
     Dates: start: 20180409, end: 20180530
  104. COMPAZINE                          /00013302/ [Concomitant]
     Active Substance: PROCHLORPERAZINE EDISYLATE
     Dosage: 5 MG, Q6H PRN
     Route: 042
     Dates: start: 20180410
  105. MAXIPIME [Concomitant]
     Active Substance: CEFEPIME HYDROCHLORIDE
     Indication: PRODUCT USED FOR UNKNOWN INDICATION
     Dosage: 2 G, SINGLE
     Route: 042
     Dates: start: 20180411, end: 20180411
  106. XYLOCAINE [Concomitant]
     Active Substance: LIDOCAINE HYDROCHLORIDE
     Indication: PRODUCT USED FOR UNKNOWN INDICATION
     Dosage: 2 %, SINGLE
     Route: 042
     Dates: start: 20180414, end: 20180414
  107. NORMAL SALINE [Concomitant]
     Active Substance: SODIUM CHLORIDE
     Dosage: 20 ML/HR CONTINUOUS
     Route: 042
     Dates: start: 20180410, end: 20180411
  108. ATIVAN [Concomitant]
     Active Substance: LORAZEPAM
     Indication: VOMITING
     Dosage: 0.26 MG, SINGLE
     Route: 042
     Dates: start: 20180412, end: 20180412
  109. SIMETHICONE (DIMETHICONE) [Concomitant]
     Active Substance: DIMETHICONE
     Indication: ABDOMINAL DISTENSION
     Dosage: 80 MG, TID
     Route: 048
     Dates: start: 20180409
  110. SODIUM PHOSPHATE [Concomitant]
     Active Substance: SODIUM PHOSPHATE
     Indication: PRODUCT USED FOR UNKNOWN INDICATION
     Dosage: 15 MMOL, SINGLE
     Route: 042
     Dates: start: 20180420, end: 20180420
  111. CALCIUM GLUCONATE. [Concomitant]
     Active Substance: CALCIUM GLUCONATE
     Indication: HYPOCALCAEMIA
     Dosage: 4.6 MEQ, PRN
     Route: 042
     Dates: start: 20180515
  112. CETAPHIL                           /02629601/ [Concomitant]
     Indication: PRURITUS
     Dosage: UNK, QID
     Route: 061
     Dates: start: 20180409
  113. MELATONIN [Concomitant]
     Active Substance: MELATONIN
     Indication: PRODUCT USED FOR UNKNOWN INDICATION
     Dosage: 3 MG, QD
     Route: 048
     Dates: start: 20180514, end: 20180516
  114. CATHFLO ACTIVASE [Concomitant]
     Active Substance: ALTEPLASE
     Indication: PRODUCT USED FOR UNKNOWN INDICATION
     Dosage: 2 MG, PRN
     Route: 042
     Dates: start: 20180409, end: 20180418
  115. NEURONTIN [Concomitant]
     Active Substance: GABAPENTIN
     Indication: ANXIETY
     Dosage: 200 MG, Q8H
     Dates: start: 20180416, end: 20180508
  116. IPRATROPIUM BROMIDE/ALBUTEROL SULFATE [Concomitant]
     Active Substance: ALBUTEROL SULFATE\IPRATROPIUM BROMIDE
     Indication: PRODUCT USED FOR UNKNOWN INDICATION
     Dosage: 0.5 - 3 MG, UNK
     Dates: start: 20180515, end: 20180516
  117. ATEZOLIZUMAB. [Suspect]
     Active Substance: ATEZOLIZUMAB
     Dosage: 1200 MG, SINGLE
     Route: 042
     Dates: start: 20180510, end: 20180510
  118. TYLENOL [Concomitant]
     Active Substance: ACETAMINOPHEN
     Dosage: 650 MG, SINGLE
     Route: 048
     Dates: start: 20180415, end: 20180415
  119. TYLENOL [Concomitant]
     Active Substance: ACETAMINOPHEN
     Dosage: 650 MG, TID
     Route: 048
     Dates: start: 20180419, end: 20180419
  120. COLACE [Concomitant]
     Active Substance: DOCUSATE SODIUM
     Dosage: 200 MG, BID
     Route: 048
     Dates: start: 20180412, end: 20180412
  121. HEPARIN [Concomitant]
     Active Substance: HEPARIN SODIUM
     Indication: PRODUCT USED FOR UNKNOWN INDICATION
     Dosage: 100 IU/ML, SINGLE
     Route: 042
     Dates: start: 20180410, end: 20180410
  122. ATARAX [Concomitant]
     Active Substance: HYDROXYZINE HYDROCHLORIDE
     Dosage: 25 MG, Q6H
     Dates: start: 20180409, end: 20180516
  123. LEVAQUIN [Concomitant]
     Active Substance: LEVOFLOXACIN
     Indication: LUNG INFECTION
     Dosage: 750 MG, EVERY 48 HOURS
     Dates: start: 20180413, end: 20180415
  124. MAGNESIUM SULFATE. [Concomitant]
     Active Substance: MAGNESIUM SULFATE
     Dosage: 8-32 MEQ, SINGLE
     Route: 042
     Dates: start: 20180411, end: 20180411
  125. MAGNESIUM SULFATE. [Concomitant]
     Active Substance: MAGNESIUM SULFATE
     Dosage: 8-32 MEQ, SINGLE
     Route: 042
     Dates: start: 20180421, end: 20180421
  126. ZOFRAN [Concomitant]
     Active Substance: ONDANSETRON HYDROCHLORIDE
     Indication: NAUSEA
     Dosage: 8 MG, TID
     Route: 048
     Dates: start: 20180410, end: 20180412
  127. ZOFRAN [Concomitant]
     Active Substance: ONDANSETRON HYDROCHLORIDE
     Dosage: 8 MG, Q6H
     Route: 048
     Dates: start: 20180422, end: 20180517
  128. POTASSIUM CHLORIDE. [Concomitant]
     Active Substance: POTASSIUM CHLORIDE
     Dosage: 10 MEQ, SINGLE
     Route: 042
     Dates: start: 20180416, end: 20180416
  129. POTASSIUM CHLORIDE. [Concomitant]
     Active Substance: POTASSIUM CHLORIDE
     Dosage: 10 MEQ, SINGLE
     Route: 048
     Dates: start: 20180419, end: 20180419
  130. POTASSIUM CHLORIDE. [Concomitant]
     Active Substance: POTASSIUM CHLORIDE
     Dosage: 10 MEQ, SINGLE
     Route: 042
     Dates: start: 20180420, end: 20180420
  131. POTASSIUM CHLORIDE. [Concomitant]
     Active Substance: POTASSIUM CHLORIDE
     Dosage: 10 MEQ, SINGLE
     Route: 042
     Dates: start: 20180423, end: 20180423
  132. DESYREL [Concomitant]
     Active Substance: TRAZODONE HYDROCHLORIDE
     Dosage: 50 MG, SINGLE BEDTIME
     Route: 048
     Dates: start: 20180411, end: 20180411
  133. MAXIPIME [Concomitant]
     Active Substance: CEFEPIME HYDROCHLORIDE
     Dosage: 2 G,SINGLE
     Route: 042
     Dates: start: 20180412, end: 20180412
  134. MAXIPIME [Concomitant]
     Active Substance: CEFEPIME HYDROCHLORIDE
     Dosage: 2 G, SINGLE
     Route: 042
     Dates: start: 20180514, end: 20180514
  135. NORMAL SALINE [Concomitant]
     Active Substance: SODIUM CHLORIDE
     Dosage: 75 ML/HR
     Route: 042
     Dates: start: 20180417, end: 20180418
  136. ATIVAN [Concomitant]
     Active Substance: LORAZEPAM
     Dosage: 0.5 MG, SINGLE
     Route: 048
     Dates: start: 20180416, end: 20180416
  137. VANCOCIN [Concomitant]
     Active Substance: VANCOMYCIN HYDROCHLORIDE
     Dosage: 1 G, SINGLE
     Route: 042
     Dates: start: 20180421, end: 20180421
  138. TRIPLE                             /00038301/ [Concomitant]
     Active Substance: BACITRACIN\NEOMYCIN SULFATE\POLYMYXIN B SULFATE
     Indication: ORAL PAIN
     Dosage: 10 ML, PRN
     Route: 048
     Dates: start: 20180409
  139. CARAFATE [Concomitant]
     Active Substance: SUCRALFATE
     Indication: OESOPHAGEAL PAIN
     Dosage: 1 G, Q6H
     Dates: start: 20180418, end: 20180418
  140. TYLENOL [Concomitant]
     Active Substance: ACETAMINOPHEN
     Dosage: 650 MG, SINGLE
     Route: 048
     Dates: start: 20180418, end: 20180418
  141. ZOVIRAX [Concomitant]
     Active Substance: ACYCLOVIR
     Indication: EVIDENCE BASED TREATMENT
     Dosage: 400 MG, SINGLE
     Route: 048
     Dates: start: 20180409, end: 20180409
  142. ZOVIRAX [Concomitant]
     Active Substance: ACYCLOVIR
     Dosage: 230 MG, 100ML/HR, 1 HOUR
     Route: 042
     Dates: start: 20180420, end: 20180420
  143. ZOVIRAX [Concomitant]
     Active Substance: ACYCLOVIR
     Dosage: 230 MG, TID
     Route: 042
     Dates: start: 20180422, end: 20180422
  144. NEUPOGEN [Concomitant]
     Active Substance: FILGRASTIM
     Dosage: 300 MCG, SINGLE
     Route: 058
     Dates: start: 20180511, end: 20180511
  145. CETAPHIL                           /02833701/ [Concomitant]
     Dosage: UNK UNK, SINGLE
     Route: 061
     Dates: start: 20180412, end: 20180412
  146. CETAPHIL                           /02833701/ [Concomitant]
     Dosage: UNK UNK, SINGLE
     Route: 061
     Dates: start: 20180414, end: 20180414
  147. CETAPHIL                           /02833701/ [Concomitant]
     Dosage: UNK, SINGLE
     Dates: start: 20180421, end: 20180421
  148. ATROVENT [Concomitant]
     Active Substance: IPRATROPIUM BROMIDE
     Indication: PRODUCT USED FOR UNKNOWN INDICATION
     Dosage: 0.5 MG, 4 TIMES
     Dates: start: 20180420, end: 20180420
  149. KEPPRA [Concomitant]
     Active Substance: LEVETIRACETAM
     Indication: PRODUCT USED FOR UNKNOWN INDICATION
     Dosage: 500 MG, Q12H
     Route: 048
     Dates: start: 20180418, end: 20180419
  150. KEPPRA [Concomitant]
     Active Substance: LEVETIRACETAM
     Dosage: 500 MG, SINGLE
     Route: 042
     Dates: start: 20180420, end: 20180420
  151. MAGNESIUM SULFATE. [Concomitant]
     Active Substance: MAGNESIUM SULFATE
     Dosage: 8-32 MEQ, SINGLE
     Route: 042
     Dates: start: 20180410, end: 20180410
  152. ROXICODONE [Concomitant]
     Active Substance: OXYCODONE HYDROCHLORIDE
     Dosage: 5 MG, Q4H
     Route: 048
     Dates: start: 20180409, end: 20180508
  153. POTASSIUM CHLORIDE. [Concomitant]
     Active Substance: POTASSIUM CHLORIDE
     Dosage: 10 MEQ, SINGLE
     Route: 042
     Dates: start: 20180422, end: 20180422
  154. K-DUR [Concomitant]
     Active Substance: POTASSIUM CHLORIDE
     Indication: PRODUCT USED FOR UNKNOWN INDICATION
     Dosage: 40 MEQ, SINGLE
     Route: 048
     Dates: start: 20180410, end: 20180410
  155. K-DUR [Concomitant]
     Active Substance: POTASSIUM CHLORIDE
     Dosage: 20 MEQ, SINGLE
     Route: 048
     Dates: start: 20180420, end: 20180420
  156. COMPAZINE                          /00013302/ [Concomitant]
     Active Substance: PROCHLORPERAZINE EDISYLATE
     Dosage: 5 MG, Q6H
     Route: 042
     Dates: start: 20180410, end: 20180517
  157. SENOKOT [Concomitant]
     Active Substance: SENNOSIDES
     Dosage: 1 TABLET, QD
     Route: 048
     Dates: start: 20180515, end: 20180516
  158. OFIRMEV [Concomitant]
     Active Substance: ACETAMINOPHEN
     Dosage: 1 G, 400 ML/HR SINGLE
     Route: 042
     Dates: start: 20180420, end: 20180420
  159. MAXIPIME [Concomitant]
     Active Substance: CEFEPIME HYDROCHLORIDE
     Dosage: 2 G, SINGLE
     Route: 042
     Dates: start: 20180411, end: 20180411
  160. LASIX [Concomitant]
     Active Substance: FUROSEMIDE
     Indication: PRODUCT USED FOR UNKNOWN INDICATION
     Dosage: 40 MG, SINGLE
     Route: 042
     Dates: start: 20180410, end: 20180410
  161. LASIX [Concomitant]
     Active Substance: FUROSEMIDE
     Dosage: 20 MG, BID
     Route: 042
     Dates: start: 20180420, end: 20180420
  162. LASIX [Concomitant]
     Active Substance: FUROSEMIDE
     Dosage: 40 MG, SINGLE
     Route: 042
     Dates: start: 20180420, end: 20180420
  163. LOPRESSOR [Concomitant]
     Active Substance: METOPROLOL TARTRATE
     Indication: PRODUCT USED FOR UNKNOWN INDICATION
     Dosage: 5 MG, SINGLE
     Route: 042
     Dates: start: 20180420, end: 20180420
  164. NORMAL SALINE [Concomitant]
     Active Substance: SODIUM CHLORIDE
     Dosage: 25 ML/HR CONTINUOUS
     Route: 042
     Dates: start: 20180420, end: 20180421
  165. NORMAL SALINE [Concomitant]
     Active Substance: SODIUM CHLORIDE
     Dosage: 500 ML, BID
     Route: 042
     Dates: start: 20180422, end: 20180422
  166. CIPRO [Concomitant]
     Active Substance: CIPROFLOXACIN HYDROCHLORIDE
     Indication: PROPHYLAXIS
     Dosage: 500 MG, BID
     Route: 048
     Dates: start: 20180418, end: 20180419
  167. SODIUM PHOSPHATE [Concomitant]
     Active Substance: SODIUM PHOSPHATE
     Dosage: 15 MMOL, SINGLE
     Route: 042
     Dates: start: 20180422, end: 20180422
  168. TYLENOL [Concomitant]
     Active Substance: ACETAMINOPHEN
     Indication: PAIN
     Dosage: 650 MG, 3 TIMES
     Route: 048
     Dates: start: 20180411, end: 20180411
  169. ZOVIRAX [Concomitant]
     Active Substance: ACYCLOVIR
     Dosage: 400 MG, TID
     Route: 048
     Dates: start: 20180508, end: 20180516
  170. COLACE [Concomitant]
     Active Substance: DOCUSATE SODIUM
     Indication: CONSTIPATION
     Dosage: 200 MG, SINGLE
     Route: 048
     Dates: start: 20180410, end: 20180410
  171. COLACE [Concomitant]
     Active Substance: DOCUSATE SODIUM
     Dosage: 100 MG, BID
     Dates: start: 20180515, end: 20180516
  172. CETAPHIL                           /02833701/ [Concomitant]
     Indication: PRURITUS
     Dosage: UNK, QD
     Route: 061
     Dates: start: 20180411, end: 20180515
  173. CETAPHIL                           /02833701/ [Concomitant]
     Dosage: UNK UNK, SINGLE
     Route: 061
     Dates: start: 20180417, end: 20180417
  174. CETAPHIL                           /02833701/ [Concomitant]
     Dosage: UNK, BID
     Route: 061
     Dates: start: 20180419, end: 20180419
  175. TRANDATE [Concomitant]
     Active Substance: LABETALOL HYDROCHLORIDE
     Dosage: 5 MG, Q6H
     Route: 042
     Dates: start: 20180423, end: 20180516
  176. LEVAQUIN [Concomitant]
     Active Substance: LEVOFLOXACIN
     Dosage: 750 MG, QD
     Route: 042
     Dates: start: 20180515, end: 20180517
  177. MAGNESIUM SULFATE. [Concomitant]
     Active Substance: MAGNESIUM SULFATE
     Dosage: 8-32 MEQ, SINGLE
     Route: 042
     Dates: start: 20180415, end: 20180415
  178. MYCOSTATIN [Concomitant]
     Active Substance: NYSTATIN
     Dosage: 5 ML, QID
     Route: 048
     Dates: start: 20180416, end: 20180430
  179. ZOFRAN [Concomitant]
     Active Substance: ONDANSETRON HYDROCHLORIDE
     Dosage: 8 MG, BID
     Route: 048
     Dates: start: 20180416, end: 20180417
  180. ZOFRAN [Concomitant]
     Active Substance: ONDANSETRON HYDROCHLORIDE
     Dosage: 8 MG, SINGLE
     Route: 048
     Dates: start: 20180418, end: 20180418
  181. ZOFRAN [Concomitant]
     Active Substance: ONDANSETRON HYDROCHLORIDE
     Dosage: 16 MG, SINGLE
     Route: 042
     Dates: start: 20180421, end: 20180421
  182. ZOFRAN [Concomitant]
     Active Substance: ONDANSETRON HYDROCHLORIDE
     Dosage: 8 MG, Q6H PRN
     Route: 042
     Dates: start: 20180504
  183. ROXICODONE [Concomitant]
     Active Substance: OXYCODONE HYDROCHLORIDE
     Indication: PAIN
     Dosage: 5 MG, SINGLE
     Route: 048
     Dates: start: 20180418, end: 20180418
  184. POTASSIUM CHLORIDE. [Concomitant]
     Active Substance: POTASSIUM CHLORIDE
     Dosage: 20 MEQ, SINGLE
     Route: 048
     Dates: start: 20180413, end: 20180413
  185. POTASSIUM CHLORIDE. [Concomitant]
     Active Substance: POTASSIUM CHLORIDE
     Dosage: 10 MEQ, SINGLE
     Route: 048
     Dates: start: 20180417, end: 20180417
  186. POTASSIUM CHLORIDE. [Concomitant]
     Active Substance: POTASSIUM CHLORIDE
     Dosage: 20 MEQ, SINGLE
     Route: 042
     Dates: start: 20180418, end: 20180418
  187. POTASSIUM CHLORIDE. [Concomitant]
     Active Substance: POTASSIUM CHLORIDE
     Dosage: 20 MEQ, SINGLE
     Route: 042
     Dates: start: 20180421, end: 20180421
  188. POTASSIUM CHLORIDE. [Concomitant]
     Active Substance: POTASSIUM CHLORIDE
     Dosage: 10 MEQ, SINGLE
     Route: 042
     Dates: start: 20180421, end: 20180421
  189. K-DUR [Concomitant]
     Active Substance: POTASSIUM CHLORIDE
     Dosage: 20 MEQ, SINGLE
     Route: 048
     Dates: start: 20180411, end: 20180411
  190. SENOKOT [Concomitant]
     Active Substance: SENNOSIDES
     Dosage: 2 TABLET, QD
     Route: 048
     Dates: start: 20180417
  191. POTASSIUM PHOSPHATE                /00493501/ [Concomitant]
     Active Substance: POTASSIUM PHOSPHATE, DIBASIC
     Indication: PRODUCT USED FOR UNKNOWN INDICATION
     Dosage: 20 MMOL, SINGLE
     Route: 042
     Dates: start: 20180417, end: 20180417
  192. CIPRO [Concomitant]
     Active Substance: CIPROFLOXACIN HYDROCHLORIDE
     Dosage: 500 MG, SINGLE
     Route: 048
     Dates: start: 20180420, end: 20180420
  193. ATIVAN [Concomitant]
     Active Substance: LORAZEPAM
     Dosage: 0.5 MG, SINGLE
     Route: 042
     Dates: start: 20180414, end: 20180414
  194. VITAMIN B6 [Concomitant]
     Active Substance: PYRIDOXINE HYDROCHLORIDE
     Indication: PRODUCT USED FOR UNKNOWN INDICATION
     Dosage: 100 MG, QD
     Route: 048
     Dates: start: 20180410, end: 20180424
  195. PERIDEX [Concomitant]
     Active Substance: CHLORHEXIDINE GLUCONATE
     Indication: PRODUCT USED FOR UNKNOWN INDICATION
     Dosage: 15 ML, BID
     Route: 048
     Dates: start: 20180515, end: 20180530
  196. FENTANYL. [Concomitant]
     Active Substance: FENTANYL
     Indication: SEDATION
     Dosage: 25 MCG, PRN
     Route: 042
     Dates: start: 20180515, end: 20180515
  197. MAGNESIUM [Concomitant]
     Active Substance: MAGNESIUM
     Dosage: 133-532 MG, PRN
     Dates: start: 20180409, end: 20180418
  198. AYGESTIN [Concomitant]
     Active Substance: NORETHINDRONE ACETATE
     Indication: PRODUCT USED FOR UNKNOWN INDICATION
     Dosage: 15 MG, QD
     Route: 048
     Dates: start: 20180418, end: 20180418
  199. DRISDOL [Concomitant]
     Active Substance: ERGOCALCIFEROL
     Indication: PRODUCT USED FOR UNKNOWN INDICATION
     Dosage: 50000 UNITS EVERY 7 DAYS, UNK
     Dates: start: 20180430, end: 20180514
  200. DUONEB [Concomitant]
     Active Substance: ALBUTEROL SULFATE\IPRATROPIUM BROMIDE
     Dosage: UNK
  201. ATEZOLIZUMAB. [Suspect]
     Active Substance: ATEZOLIZUMAB
     Indication: DIFFUSE LARGE B-CELL LYMPHOMA REFRACTORY
     Dosage: 1200 MG, SINGLE
     Route: 042
     Dates: start: 20180419, end: 20180419
  202. MAALOX                             /00416501/ [Concomitant]
     Active Substance: ALUMINUM HYDROXIDE\DIMETHICONE\MAGNESIUM HYDROXIDE
     Indication: DYSPEPSIA
     Dosage: 30 ML, Q6H
     Route: 048
     Dates: start: 20180409, end: 20180516
  203. COLACE [Concomitant]
     Active Substance: DOCUSATE SODIUM
     Dosage: 200 MG, SINGLE
     Route: 048
     Dates: start: 20180411, end: 20180411
  204. COLACE [Concomitant]
     Active Substance: DOCUSATE SODIUM
     Dosage: 200 MG, BID
     Route: 048
     Dates: start: 20180417, end: 20180515
  205. PEPCID [Concomitant]
     Active Substance: FAMOTIDINE
     Dosage: 20 MG, BID
     Route: 048
     Dates: start: 20180410, end: 20180419
  206. NEUPOGEN [Concomitant]
     Active Substance: FILGRASTIM
     Indication: PRODUCT USED FOR UNKNOWN INDICATION
     Dosage: 300 ?G, QD
     Route: 058
     Dates: start: 20180420, end: 20180423
  207. CETAPHIL                           /02833701/ [Concomitant]
     Dosage: UNK UNK, BID
     Route: 061
     Dates: start: 20180418, end: 20180418
  208. HEPARIN [Concomitant]
     Active Substance: HEPARIN SODIUM
     Dosage: 100 IU/ML, SINGLE AT BEDTIME
     Route: 042
     Dates: start: 20180410, end: 20180410
  209. LEVAQUIN [Concomitant]
     Active Substance: LEVOFLOXACIN
     Indication: FEBRILE NEUTROPENIA
     Dosage: 750 MG, QD EVERY 24 HOURS
     Route: 048
     Dates: start: 20180416, end: 20180419
  210. MAGNESIUM SULFATE. [Concomitant]
     Active Substance: MAGNESIUM SULFATE
     Dosage: 8-32 MEQ, SINGLE
     Route: 042
     Dates: start: 20180419, end: 20180419
  211. MERREM [Concomitant]
     Active Substance: MEROPENEM
     Dosage: 1 G, BID
     Route: 042
     Dates: start: 20180413, end: 20180416
  212. MERREM [Concomitant]
     Active Substance: MEROPENEM
     Dosage: 1 G, TID
     Route: 042
     Dates: start: 20180417, end: 20180423
  213. MYCOSTATIN [Concomitant]
     Active Substance: NYSTATIN
     Dosage: 5 ML, QID
     Route: 048
     Dates: start: 20180419, end: 20180419
  214. MYCOSTATIN [Concomitant]
     Active Substance: NYSTATIN
     Dosage: 5 ML, TID
     Route: 048
     Dates: start: 20180423, end: 20180423
  215. ZOFRAN [Concomitant]
     Active Substance: ONDANSETRON HYDROCHLORIDE
     Dosage: 8 MG, BID
     Route: 042
     Dates: start: 20180423, end: 20180423
  216. POTASSIUM CHLORIDE. [Concomitant]
     Active Substance: POTASSIUM CHLORIDE
     Dosage: 10 MEQ, SINGLE
     Route: 042
     Dates: start: 20180414, end: 20180414
  217. POTASSIUM CHLORIDE. [Concomitant]
     Active Substance: POTASSIUM CHLORIDE
     Dosage: 20 MEQ, BID
     Route: 042
     Dates: start: 20180419, end: 20180419
  218. POTASSIUM CHLORIDE. [Concomitant]
     Active Substance: POTASSIUM CHLORIDE
     Dosage: 20 MEQ, BID
     Route: 042
     Dates: start: 20180422, end: 20180422
  219. COMPAZINE                          /00013302/ [Concomitant]
     Active Substance: PROCHLORPERAZINE EDISYLATE
     Indication: NAUSEA
     Dosage: 5 MG, SINGLE
     Route: 042
     Dates: start: 20180417, end: 20180417
  220. COMPAZINE                          /00013302/ [Concomitant]
     Active Substance: PROCHLORPERAZINE EDISYLATE
     Indication: VOMITING
     Dosage: 5 MG, SINGLE
     Route: 048
     Dates: start: 20180417, end: 20180417
  221. COMPAZINE                          /00013302/ [Concomitant]
     Active Substance: PROCHLORPERAZINE EDISYLATE
     Dosage: 5 MG, SINGLE
     Route: 042
     Dates: start: 20180422, end: 20180422
  222. SENOKOT [Concomitant]
     Active Substance: SENNOSIDES
     Indication: PRODUCT USED FOR UNKNOWN INDICATION
     Dosage: 2 DF, HS
     Route: 048
     Dates: start: 20180410, end: 20180410
  223. DESYREL [Concomitant]
     Active Substance: TRAZODONE HYDROCHLORIDE
     Indication: INSOMNIA
     Dosage: 50 MG, SINGLE BEDTIME
     Route: 048
     Dates: start: 20180410, end: 20180410
  224. NORMAL SALINE [Concomitant]
     Active Substance: SODIUM CHLORIDE
     Dosage: 1000 ML, SINGLE
     Route: 042
     Dates: start: 20180410, end: 20180410
  225. VITAMIN D3 [Concomitant]
     Active Substance: CHOLECALCIFEROL
     Indication: PRODUCT USED FOR UNKNOWN INDICATION
     Dosage: 1000 IU, QD
     Route: 048
     Dates: start: 20180410, end: 20180422
  226. CIPRO [Concomitant]
     Active Substance: CIPROFLOXACIN HYDROCHLORIDE
     Dosage: 500 MG, BID
     Route: 048
     Dates: start: 20180421, end: 20180422
  227. ATIVAN [Concomitant]
     Active Substance: LORAZEPAM
     Indication: NAUSEA
     Dosage: 0.5 MG, SINGLE
     Route: 048
     Dates: start: 20180410, end: 20180410
  228. ATIVAN [Concomitant]
     Active Substance: LORAZEPAM
     Dosage: 1 MG, SINGLE
     Route: 048
     Dates: start: 20180420, end: 20180420
  229. SIMETHICONE (DIMETHICONE) [Concomitant]
     Active Substance: DIMETHICONE
     Indication: FLATULENCE
     Dosage: 80 MG, SINGLE
     Route: 048
     Dates: start: 20180419, end: 20180419
  230. CALCIFEROL                         /00107901/ [Concomitant]
     Active Substance: ERGOCALCIFEROL
     Indication: PRODUCT USED FOR UNKNOWN INDICATION
     Dosage: 50000 IU, EVERY 7 DAYS
     Dates: start: 20180514, end: 20180516
  231. XYLOCAINE [Concomitant]
     Active Substance: LIDOCAINE HYDROCHLORIDE
     Dosage: 2 ML, ONCE
     Route: 042
     Dates: start: 20180503, end: 20180503
  232. FLUMAZENIL. [Concomitant]
     Active Substance: FLUMAZENIL
     Indication: SEDATION COMPLICATION
     Dosage: 0.2 MG, PRN
     Route: 042
     Dates: start: 20180515, end: 20180518
  233. VERSED [Concomitant]
     Active Substance: MIDAZOLAM HYDROCHLORIDE
     Indication: SEDATION
     Dosage: 1 MG, PRN
     Route: 042
     Dates: start: 20180515, end: 20180515

REACTIONS (3)
  - Encephalopathy [Recovered/Resolved]
  - Pneumonitis [Fatal]
  - Renal tubular necrosis [Recovered/Resolved]

NARRATIVE: CASE EVENT DATE: 20180409
